FAERS Safety Report 15344022 (Version 1)
Quarter: 2018Q3

REPORT INFORMATION
  Report Type: Spontaneous
  Country: US (occurrence: US)
  Receive Date: 20180903
  Receipt Date: 20180903
  Transmission Date: 20181010
  Serious: Yes (Hospitalization)
  Sender: FDA-Public Use
  Company Number: PHEH2018US035342

PATIENT
  Age: 48 Year
  Sex: Male

DRUGS (2)
  1. IMATINIB [Suspect]
     Active Substance: IMATINIB
     Indication: PRODUCT USED FOR UNKNOWN INDICATION
     Route: 065
  2. GLEEVEC [Suspect]
     Active Substance: IMATINIB MESYLATE
     Indication: PRODUCT USED FOR UNKNOWN INDICATION
     Route: 065

REACTIONS (7)
  - Eosinophilia [Unknown]
  - Hypereosinophilic syndrome [Unknown]
  - Cardiac failure [Unknown]
  - Hypoglycaemia [Unknown]
  - Leukocytosis [Unknown]
  - Subcutaneous emphysema [Unknown]
  - Pneumothorax [Unknown]

NARRATIVE: CASE EVENT DATE: 20060515
